FAERS Safety Report 8556363-9 (Version None)
Quarter: 2012Q3

REPORT INFORMATION
  Report Type: 
  Country: None (occurrence: None)
  Receive Date: 20120801
  Receipt Date: 20120724
  Transmission Date: 20120928
  Serious: Yes (Other)
  Sender: FDA-Public Use
  Company Number: PHHY2012CA065367

PATIENT
  Age: 58 Year
  Sex: Female
  Weight: 78.005 kg

DRUGS (5)
  1. FEMARA [Suspect]
     Dosage: 2.5 MG, QD
     Route: 048
  2. XALATAN [Concomitant]
     Route: 047
  3. ZOPICLONE [Concomitant]
  4. FAMOTIDINE [Concomitant]
  5. SYNTHROID [Concomitant]

REACTIONS (2)
  - TOOTHACHE [None]
  - GLAUCOMA [None]
